FAERS Safety Report 4758669-8 (Version None)
Quarter: 2005Q3

REPORT INFORMATION
  Report Type: 
  Country: None (occurrence: None)
  Receive Date: 20050901
  Receipt Date: 20050425
  Transmission Date: 20060218
  Serious: Yes (Hospitalization)
  Sender: FDA-Public Use
  Company Number: FR-SP-E2005-01620

PATIENT
  Age: 3 Year
  Sex: Male

DRUGS (1)
  1. TUBERTEST [Suspect]
     Indication: TUBERCULIN TEST
     Route: 023
     Dates: start: 20050310

REACTIONS (9)
  - ABDOMINAL PAIN [None]
  - ALBUMINURIA [None]
  - ASTHENIA [None]
  - HENOCH-SCHONLEIN PURPURA [None]
  - OEDEMA [None]
  - PAIN IN EXTREMITY [None]
  - PETECHIAE [None]
  - PYREXIA [None]
  - VOMITING [None]
